FAERS Safety Report 19874771 (Version 1)
Quarter: 2021Q3

REPORT INFORMATION
  Report Type: Report from Study
  Country: None (occurrence: BR)
  Receive Date: 20210922
  Receipt Date: 20210922
  Transmission Date: 20211014
  Serious: Yes (Disabling)
  Sender: FDA-Public Use
  Company Number: BR-ABBVIE-21K-020-4086308-00

PATIENT
  Sex: Female
  Weight: 65 kg

DRUGS (5)
  1. FLAMACORTEN [Suspect]
     Active Substance: PREDNISONE
     Indication: PAIN
     Route: 065
  2. VITAMIN K [Concomitant]
     Active Substance: PHYTONADIONE
     Indication: PRODUCT USED FOR UNKNOWN INDICATION
     Dosage: UNSPECIFIC DOSE
  3. RINVOQ [Suspect]
     Active Substance: UPADACITINIB
     Indication: RHEUMATOID ARTHRITIS
     Dosage: UNSPECIFIC DOSE
     Route: 048
     Dates: start: 20210106, end: 202106
  4. CALCIUM [Concomitant]
     Active Substance: CALCIUM
     Indication: PRODUCT USED FOR UNKNOWN INDICATION
  5. METHOTREXATE. [Concomitant]
     Active Substance: METHOTREXATE
     Indication: PRODUCT USED FOR UNKNOWN INDICATION
     Dosage: UNSPECIFIC DOSE

REACTIONS (14)
  - Erythema [Unknown]
  - Gait disturbance [Unknown]
  - Formication [Unknown]
  - Dyspnoea [Unknown]
  - Loss of personal independence in daily activities [Unknown]
  - Fatigue [Unknown]
  - Mobility decreased [Unknown]
  - Discomfort [Unknown]
  - Joint swelling [Unknown]
  - Insomnia [Unknown]
  - Weight increased [Unknown]
  - Bedridden [Unknown]
  - Joint range of motion decreased [Unknown]
  - Pain [Unknown]

NARRATIVE: CASE EVENT DATE: 2021
